FAERS Safety Report 5611193-2 (Version None)
Quarter: 2008Q1

REPORT INFORMATION
  Report Type: 
  Country: None (occurrence: None)
  Receive Date: 20080201
  Receipt Date: 20080131
  Transmission Date: 20080703
  Serious: No
  Sender: FDA-Public Use
  Company Number: US-BAXTER-2008BH000863

PATIENT
  Age: 76 Year
  Sex: Male
  Weight: 70 kg

DRUGS (7)
  1. HEPARIN SODIUM [Suspect]
     Indication: THROMBOSIS PROPHYLAXIS
     Route: 042
     Dates: end: 20080118
  2. HEPARIN SODIUM [Suspect]
     Route: 042
     Dates: end: 20080118
  3. HEPARIN SODIUM [Suspect]
     Route: 042
     Dates: end: 20080118
  4. NEPHRO-VITE RX [Concomitant]
     Indication: VITAMIN SUPPLEMENTATION
     Route: 048
  5. PHOSLO [Concomitant]
     Indication: BLOOD PHOSPHORUS INCREASED
     Route: 048
  6. ZEMPLAR [Concomitant]
     Indication: HYPERPARATHYROIDISM
     Route: 042
  7. ARANESP [Concomitant]
     Indication: ANAEMIA
     Route: 042

REACTIONS (4)
  - BLOOD PRESSURE DECREASED [None]
  - BODY TEMPERATURE INCREASED [None]
  - CHILLS [None]
  - TREMOR [None]
